FAERS Safety Report 16722320 (Version 1)
Quarter: 2019Q3

REPORT INFORMATION
  Report Type: Spontaneous
  Country: US (occurrence: US)
  Receive Date: 20190820
  Receipt Date: 20190820
  Transmission Date: 20191005
  Serious: No
  Sender: FDA-Public Use
  Company Number: US-BAUSCH-BL-2019-022203

PATIENT
  Sex: Female

DRUGS (2)
  1. ZIRGAN [Suspect]
     Active Substance: GANCICLOVIR
     Indication: ULCERATIVE KERATITIS
     Dosage: ONE DROP AFFECTED EYE FOR 6 DAYS
     Route: 047
     Dates: start: 201907, end: 201907
  2. ZIRGAN [Suspect]
     Active Substance: GANCICLOVIR
     Dosage: 1 DROP IN THE AFFECTED EYE UNTIL THE TUBE WAS EMPTY
     Route: 047
     Dates: start: 201907

REACTIONS (2)
  - Petechiae [Not Recovered/Not Resolved]
  - Vision blurred [Not Recovered/Not Resolved]

NARRATIVE: CASE EVENT DATE: 201907
